FAERS Safety Report 16692462 (Version 1)
Quarter: 2019Q3

REPORT INFORMATION
  Report Type: Spontaneous
  Country: US (occurrence: US)
  Receive Date: 20190812
  Receipt Date: 20190812
  Transmission Date: 20191004
  Serious: No
  Sender: FDA-Public Use
  Company Number: US-MYLANLABS-2019M1071805

PATIENT
  Age: 69 Year
  Sex: Male
  Weight: 79 kg

DRUGS (1)
  1. BUPRENORPHINE AND NALOXONE SUBLINGUAL FILM [Suspect]
     Active Substance: BUPRENORPHINE HYDROCHLORIDE\NALOXONE HYDROCHLORIDE
     Indication: WITHDRAWAL SYNDROME
     Dosage: 1 DOSAGE FORM, BID
     Route: 048
     Dates: start: 20190722

REACTIONS (3)
  - Product taste abnormal [Not Recovered/Not Resolved]
  - Drug ineffective [Not Recovered/Not Resolved]
  - Product tampering [Not Recovered/Not Resolved]

NARRATIVE: CASE EVENT DATE: 201907
